FAERS Safety Report 10621409 (Version 1)
Quarter: 2014Q4

REPORT INFORMATION
  Report Type: Spontaneous
  Country: IN (occurrence: IN)
  Receive Date: 20141203
  Receipt Date: 20141203
  Transmission Date: 20150529
  Serious: Yes (Congenital Anomaly, Other)
  Sender: FDA-Public Use
  Company Number: IN-AUROBINDO-AUR-APL-2014-12589

PATIENT
  Sex: Male
  Weight: 2.5 kg

DRUGS (1)
  1. DIVALPROEX [Suspect]
     Active Substance: DIVALPROEX SODIUM
     Indication: EPILEPSY
     Dosage: 800 MG, DAILY
     Route: 065

REACTIONS (20)
  - Use of accessory respiratory muscles [Unknown]
  - Skin turgor decreased [Unknown]
  - Foetal exposure during pregnancy [Unknown]
  - Craniosynostosis [Unknown]
  - Pyrexia [Unknown]
  - Cardiac murmur [Unknown]
  - Foetal anticonvulsant syndrome [Unknown]
  - Hepatomegaly [Unknown]
  - Failure to thrive [Unknown]
  - Ventricular septal defect [Unknown]
  - Patent ductus arteriosus [Unknown]
  - Limb malformation [Unknown]
  - Hypospadias [Unknown]
  - Atrial septal defect [Unknown]
  - Crepitations [Unknown]
  - Dyspnoea [Unknown]
  - Cardiac failure congestive [Unknown]
  - Pulmonary hypertension [Unknown]
  - Dysmorphism [Unknown]
  - Heart disease congenital [Unknown]
